FAERS Safety Report 8807762 (Version 2)
Quarter: 2012Q4

REPORT INFORMATION
  Report Type: Report from Study
  Country: JP (occurrence: JP)
  Receive Date: 20120925
  Receipt Date: 20121025
  Transmission Date: 20130627
  Serious: Yes (Death)
  Sender: FDA-Public Use
  Company Number: JP-EISAI INC-E7389-03002-SPO-P

PATIENT
  Age: 67 Year
  Sex: Female
  Weight: 64 kg

DRUGS (13)
  1. HALAVEN [Suspect]
     Indication: BREAST CANCER RECURRENT
     Route: 041
     Dates: start: 20120425, end: 20120718
  2. SELBEX [Concomitant]
     Indication: GASTRITIS
     Route: 048
     Dates: start: 20110105
  3. LASIX [Concomitant]
     Indication: OEDEMA
     Route: 048
     Dates: start: 20110803
  4. ALDACTONE A [Concomitant]
     Indication: OEDEMA
     Route: 048
     Dates: start: 20110803
  5. TATHION [Concomitant]
     Indication: ITCHY SKIN
     Route: 048
     Dates: start: 20101217
  6. URSO [Concomitant]
     Indication: LIVER DISORDER
     Route: 048
     Dates: start: 20120425
  7. KENALOG [Concomitant]
     Indication: STOMATITIS
     Route: 048
     Dates: start: 20120502
  8. AFTACH [Concomitant]
     Indication: STOMATITIS
     Route: 048
     Dates: start: 20120509
  9. DEPAS [Concomitant]
     Indication: SLEEP LOSS
     Route: 048
     Dates: start: 20120523
  10. DOMPERIDONE [Concomitant]
     Indication: QUEASY
     Route: 048
     Dates: start: 20120425
  11. ALOSENN [Concomitant]
     Indication: CONSTIPATION
     Route: 048
     Dates: start: 20120620
  12. PROTECADIN [Concomitant]
     Indication: GASTRITIS
     Route: 048
     Dates: start: 20120713
  13. MYONAL [Concomitant]
     Indication: CRAMP
     Route: 048
     Dates: start: 20120718, end: 20120801

REACTIONS (1)
  - Hepatic cirrhosis [Fatal]
